FAERS Safety Report 8774706 (Version 2)
Quarter: 2012Q4

REPORT INFORMATION
  Report Type: 
  Country: US (occurrence: US)
  Receive Date: 20120910
  Receipt Date: 20120912
  Transmission Date: 20130627
  Serious: No
  Sender: FDA-Public Use
  Company Number: US-PFIZER INC-2012221499

PATIENT
  Age: 60 Year
  Sex: Female

DRUGS (6)
  1. ZOLOFT [Suspect]
     Indication: ANXIETY
     Dosage: 50mg half tablet daily
     Dates: start: 20120906, end: 20120906
  2. METFORMIN [Concomitant]
     Indication: DIABETES MELLITUS
     Dosage: 500 mg, daily
     Dates: start: 2000
  3. METFORMIN [Concomitant]
     Dosage: UNK
  4. ONGLYZA [Concomitant]
     Indication: DIABETES MELLITUS
     Dosage: 5 mg, daily
  5. ONGLYZA [Concomitant]
     Dosage: UNK
  6. XANAX [Concomitant]
     Dosage: UNK, as needed

REACTIONS (10)
  - Muscle tightness [Not Recovered/Not Resolved]
  - Pain [Not Recovered/Not Resolved]
  - Panic reaction [Unknown]
  - Feeling cold [Unknown]
  - Malaise [Unknown]
  - Facial pain [Recovered/Resolved]
  - Toothache [Recovered/Resolved]
  - Feeling abnormal [Recovered/Resolved]
  - Musculoskeletal stiffness [Recovered/Resolved]
  - Incorrect dose administered [Unknown]
